FAERS Safety Report 25455929 (Version 2)
Quarter: 2025Q2

REPORT INFORMATION
  Report Type: Report from Study
  Country: US (occurrence: US)
  Receive Date: 20250619
  Receipt Date: 20250623
  Transmission Date: 20250717
  Serious: No
  Sender: TAKEDA
  Company Number: US-TAKEDA-2025TUS055346

PATIENT
  Sex: Male
  Weight: 94 kg

DRUGS (1)
  1. HUMAN IMMUNOGLOBULIN G [Suspect]
     Active Substance: HUMAN IMMUNOGLOBULIN G
     Indication: Chronic inflammatory demyelinating polyradiculoneuropathy
     Dosage: 20 GRAM, 1/WEEK

REACTIONS (4)
  - No adverse event [Unknown]
  - Product container issue [Unknown]
  - Product storage error [Unknown]
  - Product temperature excursion issue [Unknown]
